FAERS Safety Report 15877296 (Version 3)
Quarter: 2019Q1

REPORT INFORMATION
  Report Type: Spontaneous
  Country: US (occurrence: US)
  Receive Date: 20190128
  Receipt Date: 20190222
  Transmission Date: 20190417
  Serious: No
  Sender: FDA-Public Use
  Company Number: US-SA-2017SA002248

PATIENT
  Age: 80 Year
  Sex: Male
  Weight: 31 kg

DRUGS (2)
  1. LANTUS SOLOSTAR [Suspect]
     Active Substance: INSULIN GLARGINE
     Dosage: 31 U
     Route: 065
  2. LANTUS SOLOSTAR [Suspect]
     Active Substance: INSULIN GLARGINE
     Indication: TYPE 2 DIABETES MELLITUS
     Dosage: 31 MG,QD
     Route: 065
     Dates: start: 2014

REACTIONS (4)
  - Blood glucose increased [Unknown]
  - Device operational issue [Unknown]
  - Blood glucose abnormal [Unknown]
  - Glycosylated haemoglobin decreased [Unknown]
